FAERS Safety Report 4598061-2 (Version None)
Quarter: 2005Q1

REPORT INFORMATION
  Report Type: 
  Country: None (occurrence: None)
  Receive Date: 20050304
  Receipt Date: 20041202
  Transmission Date: 20050727
  Serious: Yes (Other)
  Sender: FDA-Public Use
  Company Number: US-JNJFOC-20041200442

PATIENT
  Sex: Female
  Weight: 58.97 kg

DRUGS (9)
  1. REMICADE [Suspect]
     Route: 042
  2. REMICADE [Suspect]
     Indication: CROHN'S DISEASE
     Route: 042
  3. SOLU-MEDROL [Concomitant]
  4. PAMELOR [Concomitant]
  5. 6 MP [Concomitant]
  6. LEVBID [Concomitant]
     Dosage: 0.3 TS DAILY WHENEVER NECESSARY
  7. LEVOXYL [Concomitant]
  8. DESOGEN [Concomitant]
  9. ASACOL [Concomitant]

REACTIONS (1)
  - PSORIASIS [None]
